FAERS Safety Report 9058375 (Version 1)
Quarter: 2013Q1

REPORT INFORMATION
  Report Type: Spontaneous
  Country: US (occurrence: None)
  Receive Date: 20130205
  Receipt Date: 20130205
  Transmission Date: 20140127
  Serious: Yes (Other)
  Sender: FDA-Public Use
  Company Number: None

PATIENT
  Age: 65 Year
  Sex: Male

DRUGS (1)
  1. SUTENT [Suspect]
     Indication: PLASMA CELL MYELOMA
     Route: 048
     Dates: start: 20120719

REACTIONS (2)
  - Tongue disorder [None]
  - Antifungal treatment [None]
